FAERS Safety Report 19190958 (Version 1)
Quarter: 2021Q2

REPORT INFORMATION
  Report Type: Spontaneous
  Country: US (occurrence: US)
  Receive Date: 20210428
  Receipt Date: 20210428
  Transmission Date: 20210717
  Serious: No
  Sender: FDA-Public Use
  Company Number: US-MYLANLABS-2021M1023181

PATIENT
  Sex: Female

DRUGS (1)
  1. EMSAM [Suspect]
     Active Substance: SELEGILINE
     Indication: DEPRESSION
     Dosage: 12 MILLIGRAM, QD
     Route: 062

REACTIONS (4)
  - Application site vesicles [Unknown]
  - Application site irritation [Unknown]
  - Application site hypersensitivity [Unknown]
  - Application site erythema [Unknown]
